FAERS Safety Report 6956271-0 (Version None)
Quarter: 2010Q3

REPORT INFORMATION
  Report Type: 
  Country: None (occurrence: None)
  Receive Date: 20100830
  Receipt Date: 20100820
  Transmission Date: 20110219
  Serious: Yes (Other)
  Sender: FDA-Public Use
  Company Number: US-PURDUE-USA-2010-0045859

PATIENT
  Sex: Female

DRUGS (2)
  1. OXYCONTIN [Suspect]
     Indication: PAIN
     Dosage: UNK
     Dates: start: 20100819
  2. TENORMIN [Concomitant]
     Indication: VENTRICULAR EXTRASYSTOLES

REACTIONS (2)
  - HEADACHE [None]
  - VENTRICULAR EXTRASYSTOLES [None]
